FAERS Safety Report 12225512 (Version 2)
Quarter: 2017Q4

REPORT INFORMATION
  Report Type: Spontaneous
  Country: US (occurrence: US)
  Receive Date: 20160331
  Receipt Date: 20171016
  Transmission Date: 20180320
  Serious: Yes (Death, Hospitalization, Other)
  Sender: FDA-Public Use
  Company Number: US-MYLANLABS-2016M1013449

PATIENT
  Age: 31 Year
  Sex: Female

DRUGS (13)
  1. DIAZEPAM. [Suspect]
     Active Substance: DIAZEPAM
     Indication: MEDICATION ERROR
     Dosage: 10MG
     Route: 065
  2. VECURONIUM [Suspect]
     Active Substance: VECURONIUM BROMIDE
     Indication: MEDICATION ERROR
     Dosage: 4MG
     Route: 065
  3. THIOPENTAL SODIUM. [Suspect]
     Active Substance: THIOPENTAL SODIUM
     Indication: MEDICATION ERROR
     Route: 065
  4. METRONIDAZOLE. [Suspect]
     Active Substance: METRONIDAZOLE
     Indication: PRODUCT USED FOR UNKNOWN INDICATION
     Route: 065
  5. ERYTHROMYCIN MYLAN [Suspect]
     Active Substance: ERYTHROMYCIN
     Indication: PRODUCT USED FOR UNKNOWN INDICATION
     Route: 065
  6. AMIODARONE [Suspect]
     Active Substance: AMIODARONE
     Indication: MEDICATION ERROR
     Dosage: 150MG
     Route: 065
  7. SUCCINYLCHOLINE CHLORIDE. [Suspect]
     Active Substance: SUCCINYLCHOLINE CHLORIDE
     Indication: GENERAL ANAESTHESIA
     Dosage: 100MG
     Route: 065
  8. PHENYTOIN. [Suspect]
     Active Substance: PHENYTOIN
     Indication: MEDICATION ERROR
     Route: 065
  9. MIDAZOLAM [Suspect]
     Active Substance: MIDAZOLAM HYDROCHLORIDE
     Indication: MEDICATION ERROR
     Route: 065
  10. TRANEXAMIC ACID. [Suspect]
     Active Substance: TRANEXAMIC ACID
     Indication: MEDICATION ERROR
     Dosage: 2CC SOLUTION
     Route: 037
  11. LABETALOL [Suspect]
     Active Substance: LABETALOL\LABETALOL HYDROCHLORIDE
     Indication: MEDICATION ERROR
     Dosage: 20MG
     Route: 065
  12. PROPOFOL. [Suspect]
     Active Substance: PROPOFOL
     Indication: GENERAL ANAESTHESIA
     Dosage: 150MG
     Route: 065
  13. CEFUROXIME. [Suspect]
     Active Substance: CEFUROXIME
     Indication: PRODUCT USED FOR UNKNOWN INDICATION
     Route: 042

REACTIONS (13)
  - Wrong drug administered [Fatal]
  - Muscle spasms [Unknown]
  - Hypertension [Unknown]
  - Cardio-respiratory arrest [Fatal]
  - Tetany [Unknown]
  - Product packaging confusion [None]
  - Agitation [Unknown]
  - Caesarean section [None]
  - Maternal exposure during delivery [Fatal]
  - Back pain [Unknown]
  - Status epilepticus [Unknown]
  - Haemodynamic instability [Unknown]
  - Ventricular tachycardia [Unknown]
